FAERS Safety Report 16327146 (Version 1)
Quarter: 2019Q2

REPORT INFORMATION
  Report Type: Spontaneous
  Country: US (occurrence: US)
  Receive Date: 20190517
  Receipt Date: 20190517
  Transmission Date: 20190711
  Serious: No
  Sender: FDA-Public Use
  Company Number: US-SA-2019SA134161

PATIENT
  Age: 68 Year
  Sex: Female

DRUGS (21)
  1. DUPIXENT [Suspect]
     Active Substance: DUPILUMAB
     Indication: PRODUCT USED FOR UNKNOWN INDICATION
     Dosage: 300 MG, QOW
     Route: 058
  2. NIZATIDINE. [Concomitant]
     Active Substance: NIZATIDINE
  3. RANEXA [Concomitant]
     Active Substance: RANOLAZINE
  4. SYNTHROID [Concomitant]
     Active Substance: LEVOTHYROXINE SODIUM
  5. EPLERENONE. [Concomitant]
     Active Substance: EPLERENONE
  6. LINZESS [Concomitant]
     Active Substance: LINACLOTIDE
  7. PROAIR HFA [Concomitant]
     Active Substance: ALBUTEROL SULFATE
  8. ULORIC [Concomitant]
     Active Substance: FEBUXOSTAT
  9. ADVAIR HFA [Concomitant]
     Active Substance: FLUTICASONE PROPIONATE\SALMETEROL XINAFOATE
  10. ESOMEPRAZOLE. [Concomitant]
     Active Substance: ESOMEPRAZOLE MAGNESIUM
  11. FUROSEMIDE. [Concomitant]
     Active Substance: FUROSEMIDE
  12. METOPROLOL. [Concomitant]
     Active Substance: METOPROLOL
  13. ANDROGEL [Concomitant]
     Active Substance: TESTOSTERONE
  14. HYDROQUINONE. [Concomitant]
     Active Substance: HYDROQUINONE
  15. LISINOPRIL. [Concomitant]
     Active Substance: LISINOPRIL
  16. FLOVENT [Concomitant]
     Active Substance: FLUTICASONE PROPIONATE
  17. SPIRIVA [Concomitant]
     Active Substance: TIOTROPIUM BROMIDE MONOHYDRATE
  18. THEOPHYLLINE [Concomitant]
     Active Substance: THEOPHYLLINE ANHYDROUS
  19. ATORVASTATIN [Concomitant]
     Active Substance: ATORVASTATIN
  20. SINGULAIR [Concomitant]
     Active Substance: MONTELUKAST SODIUM
  21. CLOPIDOGREL [Concomitant]
     Active Substance: CLOPIDOGREL BISULFATE

REACTIONS (1)
  - Incorrect product administration duration [Recovered/Resolved]
